FAERS Safety Report 10459214 (Version 2)
Quarter: 2014Q4

REPORT INFORMATION
  Report Type: Spontaneous
  Country: US (occurrence: US)
  Receive Date: 20140917
  Receipt Date: 20141015
  Transmission Date: 20150528
  Serious: No
  Sender: FDA-Public Use
  Company Number: US-009507513-1409USA004731

PATIENT
  Sex: Female

DRUGS (1)
  1. DULERA [Suspect]
     Active Substance: FORMOTEROL FUMARATE DIHYDRATE\MOMETASONE FUROATE
     Indication: ASTHMA
     Dosage: 100MCG/1 PUFF/TWICE DAILY
     Route: 055
     Dates: start: 2013

REACTIONS (4)
  - Heart rate increased [Recovered/Resolved]
  - Malaise [Recovered/Resolved]
  - Drug hypersensitivity [Unknown]
  - Malaise [Unknown]
